FAERS Safety Report 4344071-X (Version None)
Quarter: 2004Q2

REPORT INFORMATION
  Report Type: 
  Country: None (occurrence: None)
  Receive Date: 20040419
  Receipt Date: 20040409
  Transmission Date: 20050107
  Serious: Yes (Death)
  Sender: FDA-Public Use
  Company Number: 20031649

PATIENT
  Sex: Female

DRUGS (3)
  1. LIORESAL [Suspect]
     Indication: MUSCLE SPASTICITY
     Dosage: MCG, DAILY, INTRATHECAL
     Route: 037
  2. ANTIBIOTICS [Concomitant]
  3. DEXAMETHASONE [Concomitant]

REACTIONS (7)
  - COMA [None]
  - DEVICE FAILURE [None]
  - HYPERTONIA [None]
  - HYPOTONIA [None]
  - PROTEUS INFECTION [None]
  - RESPIRATORY FAILURE [None]
  - UROSEPSIS [None]
